FAERS Safety Report 9992498 (Version 2)
Quarter: 2014Q1

REPORT INFORMATION
  Report Type: Spontaneous
  Country: US (occurrence: US)
  Receive Date: 20140310
  Receipt Date: 20140331
  Transmission Date: 20141002
  Serious: No
  Sender: FDA-Public Use
  Company Number: US-PFIZER INC-2014065019

PATIENT
  Age: 58 Year
  Sex: Female
  Weight: 71.66 kg

DRUGS (2)
  1. ADVIL [Suspect]
     Indication: HEADACHE
     Dosage: UNK, AS NEEDED
     Route: 048
  2. ADVIL [Suspect]
     Indication: ARTHRALGIA

REACTIONS (4)
  - Expired drug administered [Unknown]
  - Wrong technique in drug usage process [Unknown]
  - Dysphagia [Unknown]
  - Oral discomfort [Unknown]
